FAERS Safety Report 8242993-0 (Version None)
Quarter: 2012Q1

REPORT INFORMATION
  Report Type: 
  Country: None (occurrence: None)
  Receive Date: 20120329
  Receipt Date: 20120322
  Transmission Date: 20120608
  Serious: Yes (Other)
  Sender: FDA-Public Use
  Company Number: US-PFIZER INC-2012075840

PATIENT
  Sex: Female

DRUGS (5)
  1. SIMVASTATIN [Concomitant]
     Indication: BLOOD CHOLESTEROL INCREASED
     Dosage: 40 MG, DAILY
  2. NEURONTIN [Suspect]
     Indication: PELVIC DISCOMFORT
     Dosage: 500-600 MG A DAY
  3. VALIUM [Concomitant]
     Indication: MUSCLE SPASMS
     Dosage: 5 MG, DAILY
  4. LISINOPRIL [Concomitant]
     Indication: HYPERTENSION
     Dosage: 25 MG, DAILY
  5. NEURONTIN [Suspect]
     Indication: MUSCLE SPASMS
     Dosage: 200 MG, UNK

REACTIONS (1)
  - PSYCHOMOTOR HYPERACTIVITY [None]
